FAERS Safety Report 18767935 (Version 2)
Quarter: 2021Q1

REPORT INFORMATION
  Report Type: Report from Study
  Country: US (occurrence: US)
  Receive Date: 20210121
  Receipt Date: 20210309
  Transmission Date: 20210419
  Serious: Yes (Other)
  Sender: FDA-Public Use
  Company Number: US-GILEAD-2021-0513661

PATIENT
  Age: 84 Year
  Sex: Female
  Weight: 82.99 kg

DRUGS (1)
  1. AMBRISENTAN [Suspect]
     Active Substance: AMBRISENTAN
     Indication: PULMONARY ARTERIAL HYPERTENSION
     Dosage: 10 MG
     Route: 065
     Dates: start: 20110422

REACTIONS (2)
  - Blindness unilateral [Not Recovered/Not Resolved]
  - Corneal opacity [Not Recovered/Not Resolved]
